FAERS Safety Report 7003527-1 (Version None)
Quarter: 2010Q3

REPORT INFORMATION
  Report Type: 
  Country: None (occurrence: None)
  Receive Date: 20100916
  Receipt Date: 20100831
  Transmission Date: 20110219
  Serious: Yes (Death)
  Sender: FDA-Public Use
  Company Number: 2010003714

PATIENT
  Age: 65 Year
  Sex: Female
  Weight: 44 kg

DRUGS (9)
  1. ERLOTINIB HYDROCHLORIDE [Suspect]
     Indication: LUNG SQUAMOUS CELL CARCINOMA STAGE UNSPECIFIED
     Dosage: (150 MG, QD), ORAL
     Route: 048
     Dates: start: 20090616, end: 20090629
  2. LOXONIN (LOXOPROFEN SODIUM) [Concomitant]
  3. MEDICON (DEXTROMETHORPHAN) [Concomitant]
  4. LANSOPRAZOLE [Concomitant]
  5. NORVASC [Concomitant]
  6. MAGNESIUM OXIDE (MAGNESIUM OXIDE) [Concomitant]
  7. DEPAS (ETIZOLAM) [Concomitant]
  8. PREDNISOLONE [Concomitant]
  9. OXYCONTIN [Concomitant]

REACTIONS (4)
  - DISSEMINATED INTRAVASCULAR COAGULATION [None]
  - INTERSTITIAL LUNG DISEASE [None]
  - LUNG SQUAMOUS CELL CARCINOMA STAGE UNSPECIFIED [None]
  - MALIGNANT NEOPLASM PROGRESSION [None]
